FAERS Safety Report 7722932-9 (Version None)
Quarter: 2011Q3

REPORT INFORMATION
  Report Type: 
  Country: None (occurrence: None)
  Receive Date: 20110829
  Receipt Date: 20110818
  Transmission Date: 20111222
  Serious: Yes (Hospitalization)
  Sender: FDA-Public Use
  Company Number: LEO-2011-00681

PATIENT
  Age: 74 Year
  Sex: Female

DRUGS (5)
  1. RAMIPRIL [Suspect]
     Indication: PRODUCT USED FOR UNKNOWN INDICATION
     Dosage: MORE THAN 3 MONTHS
     Dates: end: 20101101
  2. CORDARONE [Suspect]
     Indication: ARRHYTHMIA SUPRAVENTRICULAR
     Dosage: ORAL
     Route: 048
     Dates: start: 20101029, end: 20101101
  3. PENTOXIFYLLINE [Suspect]
     Indication: ARRHYTHMIA SUPRAVENTRICULAR
     Dosage: ORAL
     Route: 048
     Dates: start: 20101029, end: 20101101
  4. FUROSEMIDE [Suspect]
     Indication: ARRHYTHMIA SUPRAVENTRICULAR
     Dosage: ORAL
     Route: 048
     Dates: start: 20101029, end: 20101102
  5. INNOHEP [Suspect]
     Indication: ARRHYTHMIA SUPRAVENTRICULAR
     Dosage: SUBCUTANEOUS
     Route: 058
     Dates: start: 20101029, end: 20101101

REACTIONS (3)
  - SKIN PLAQUE [None]
  - ERYTHEMA [None]
  - PRURITUS [None]
